FAERS Safety Report 5623275-X (Version None)
Quarter: 2008Q1

REPORT INFORMATION
  Report Type: 
  Country: None (occurrence: None)
  Receive Date: 20080206
  Receipt Date: 20080128
  Transmission Date: 20080703
  Serious: Yes (Other)
  Sender: FDA-Public Use
  Company Number: 2008AP000309

PATIENT
  Age: 52 Year
  Sex: Male

DRUGS (11)
  1. PAROXETINE HCL [Suspect]
     Dosage: PO;QD; ORAL_SUS;PO;QD; 27 MG;TAB;PO;QD; 2 MG;PO;QD; 0.8 ML;ORAL_LIQ;PO;QD; 2.8 MG, PO;QD
     Route: 048
     Dates: start: 19990407
  2. PAROXETINE HCL [Suspect]
     Dosage: PO;QD; ORAL_SUS;PO;QD; 27 MG;TAB;PO;QD; 2 MG;PO;QD; 0.8 ML;ORAL_LIQ;PO;QD; 2.8 MG, PO;QD
     Route: 048
     Dates: start: 20040203
  3. PAROXETINE HCL [Suspect]
     Dosage: PO;QD; ORAL_SUS;PO;QD; 27 MG;TAB;PO;QD; 2 MG;PO;QD; 0.8 ML;ORAL_LIQ;PO;QD; 2.8 MG, PO;QD
     Route: 048
     Dates: start: 20040312
  4. PAROXETINE HCL [Suspect]
     Dosage: PO;QD; ORAL_SUS;PO;QD; 27 MG;TAB;PO;QD; 2 MG;PO;QD; 0.8 ML;ORAL_LIQ;PO;QD; 2.8 MG, PO;QD
     Route: 048
     Dates: start: 20050101
  5. PAROXETINE HCL [Suspect]
     Dosage: PO;QD; ORAL_SUS;PO;QD; 27 MG;TAB;PO;QD; 2 MG;PO;QD; 0.8 ML;ORAL_LIQ;PO;QD; 2.8 MG, PO;QD
     Route: 048
     Dates: start: 20050101
  6. PAROXETINE HCL [Suspect]
     Dosage: PO;QD; ORAL_SUS;PO;QD; 27 MG;TAB;PO;QD; 2 MG;PO;QD; 0.8 ML;ORAL_LIQ;PO;QD; 2.8 MG, PO;QD
     Route: 048
     Dates: start: 20050412
  7. AMITRIPTYLINE HCL [Concomitant]
  8. CITALOPRAM HYDROBROMIDE [Concomitant]
  9. DIAZEPAM [Concomitant]
  10. LOFPEPRAMINE HYDROCHLORIDE      (LOFEPRAMINE HYDROCHLORIDE) [Concomitant]
  11. FLUOXETINE HYDROCHLORIDE         (FLUOXETINE HYDRACHLORIDE) [Concomitant]

REACTIONS (3)
  - CIRCULATORY COLLAPSE [None]
  - HEMIPARESIS [None]
  - WITHDRAWAL SYNDROME [None]
